FAERS Safety Report 20505512 (Version 1)
Quarter: 2022Q1

REPORT INFORMATION
  Report Type: Spontaneous
  Country: US (occurrence: US)
  Receive Date: 20220223
  Receipt Date: 20220223
  Transmission Date: 20220424
  Serious: No
  Sender: FDA-Public Use
  Company Number: US-SA-SAC20220217000519

PATIENT
  Sex: Female
  Weight: 74.7 kg

DRUGS (3)
  1. DUPIXENT [Suspect]
     Active Substance: DUPILUMAB
     Indication: Dermatitis atopic
     Dosage: 300 MG, QOW
     Route: 058
     Dates: start: 20210309
  2. ONDANSETRON [Concomitant]
     Active Substance: ONDANSETRON
     Route: 048
  3. PFIZER-BIONTECH COVID-19 VACCINE [Concomitant]
     Active Substance: TOZINAMERAN
     Indication: Prophylaxis

REACTIONS (1)
  - Abdominal pain upper [Unknown]
